FAERS Safety Report 11723110 (Version 1)
Quarter: 2015Q4

REPORT INFORMATION
  Report Type: Report from Study
  Country: US (occurrence: US)
  Receive Date: 20151111
  Receipt Date: 20151111
  Transmission Date: 20160304
  Serious: Yes (Other)
  Sender: FDA-Public Use
  Company Number: US-ABBVIE-15K-163-1492842-00

PATIENT
  Sex: Male
  Weight: 72.64 kg

DRUGS (7)
  1. SULINDAC. [Concomitant]
     Active Substance: SULINDAC
     Indication: SPONDYLOARTHROPATHY
  2. CYTOTEC [Concomitant]
     Active Substance: MISOPROSTOL
     Indication: PROPHYLAXIS
  3. WELLBUTRIN [Concomitant]
     Active Substance: BUPROPION HYDROCHLORIDE
     Indication: DEPRESSION
  4. HUMIRA [Suspect]
     Active Substance: ADALIMUMAB
     Indication: SPONDYLOARTHROPATHY
     Route: 058
     Dates: start: 201503, end: 20151019
  5. CYTOTEC [Concomitant]
     Active Substance: MISOPROSTOL
     Indication: ULCER
  6. INDOMETHACIN. [Concomitant]
     Active Substance: INDOMETHACIN
     Indication: SPONDYLOARTHROPATHY
  7. ATORVASTATIN [Concomitant]
     Active Substance: ATORVASTATIN
     Indication: BLOOD CHOLESTEROL INCREASED

REACTIONS (6)
  - Haemoglobin decreased [Unknown]
  - White blood cell count decreased [Unknown]
  - Neutrophil count decreased [Unknown]
  - Spondyloarthropathy [Unknown]
  - Bone marrow failure [Not Recovered/Not Resolved]
  - Haematocrit decreased [Unknown]

NARRATIVE: CASE EVENT DATE: 2015
